FAERS Safety Report 8478268-4 (Version None)
Quarter: 2012Q2

REPORT INFORMATION
  Report Type: 
  Country: None (occurrence: None)
  Receive Date: 20120629
  Receipt Date: 20120621
  Transmission Date: 20120825
  Serious: No
  Sender: FDA-Public Use
  Company Number: BR-SANOFI-AVENTIS-2011SA051912

PATIENT
  Sex: Female

DRUGS (2)
  1. ARAVA [Suspect]
     Indication: RHEUMATOID ARTHRITIS
     Route: 065
     Dates: end: 20110808
  2. CORTICOSTEROID NOS [Suspect]
     Route: 065

REACTIONS (3)
  - MATERNAL EXPOSURE DURING PREGNANCY [None]
  - PREMATURE LABOUR [None]
  - OFF LABEL USE [None]
